FAERS Safety Report 9967325 (Version 2)
Quarter: 2014Q1

REPORT INFORMATION
  Report Type: Report from Study
  Country: US (occurrence: US)
  Receive Date: 20140305
  Receipt Date: 20140305
  Transmission Date: 20141002
  Serious: No
  Sender: FDA-Public Use
  Company Number: US-ABBVIE-13P-163-1120382-00

PATIENT
  Sex: Female

DRUGS (6)
  1. HUMIRA [Suspect]
     Indication: RHEUMATOID ARTHRITIS
     Dates: start: 20130502, end: 20130708
  2. VICODIN [Concomitant]
     Indication: PAIN
     Dosage: AS REQUIRED
  3. VICODIN [Concomitant]
     Indication: RHEUMATOID ARTHRITIS
  4. PREDNISONE [Concomitant]
     Indication: RHEUMATOID ARTHRITIS
  5. AMLODIPINE [Concomitant]
     Indication: HYPERTENSION
     Dosage: 2.5MG DAILY
  6. ATENOLOL [Concomitant]
     Indication: HYPERTENSION
     Dosage: 12MG DAILY
     Route: 048

REACTIONS (1)
  - Decreased immune responsiveness [Not Recovered/Not Resolved]
